FAERS Safety Report 7569234-1 (Version None)
Quarter: 2011Q2

REPORT INFORMATION
  Report Type: 
  Country: None (occurrence: None)
  Receive Date: 20110623
  Receipt Date: 20110615
  Transmission Date: 20111010
  Serious: Yes (Hospitalization)
  Sender: FDA-Public Use
  Company Number: US-MILLENNIUM PHARMACEUTICALS, INC.-2011-02518

PATIENT
  Age: 83 Year
  Sex: Female
  Weight: 77.7 kg

DRUGS (8)
  1. REVLIMID [Suspect]
     Dosage: 25 MG, UNK
     Route: 048
     Dates: start: 20110422, end: 20110504
  2. DEXAMETHASONE [Suspect]
     Dosage: 20 MG, CYCLIC
     Route: 048
     Dates: start: 20110422, end: 20110503
  3. ASPIRIN [Concomitant]
     Indication: PRODUCT USED FOR UNKNOWN INDICATION
     Dosage: 325 MG, QD
     Route: 048
  4. VELCADE [Suspect]
     Indication: MULTIPLE MYELOMA
     Dosage: 1.3 MG/M2, CYCLIC
     Route: 040
     Dates: start: 20110207
  5. WARFARIN SODIUM [Concomitant]
     Indication: PRODUCT USED FOR UNKNOWN INDICATION
  6. VELCADE [Suspect]
     Dosage: 1.3 MG/M2, CYCLIC
     Route: 040
     Dates: start: 20110422, end: 20110502
  7. DEXAMETHASONE [Suspect]
     Indication: MULTIPLE MYELOMA
     Dosage: 20 MG, CYCLIC
     Route: 048
     Dates: start: 20110207
  8. REVLIMID [Suspect]
     Indication: MULTIPLE MYELOMA
     Dosage: 25 MG, CYCLIC
     Route: 048
     Dates: start: 20110207

REACTIONS (6)
  - DYSPNOEA [None]
  - BRONCHITIS [None]
  - LOWER GASTROINTESTINAL HAEMORRHAGE [None]
  - DIZZINESS [None]
  - INTERNATIONAL NORMALISED RATIO INCREASED [None]
  - ANAEMIA [None]
